FAERS Safety Report 19737646 (Version 1)
Quarter: 2021Q3

REPORT INFORMATION
  Report Type: Spontaneous
  Country: US (occurrence: US)
  Receive Date: 20210824
  Receipt Date: 20210824
  Transmission Date: 20211014
  Serious: No
  Sender: FDA-Public Use
  Company Number: US-BIOVITRUM-2021US7647

PATIENT
  Age: 58 Year
  Sex: Male

DRUGS (1)
  1. KINERET [Suspect]
     Active Substance: ANAKINRA
     Indication: ARTHROPATHY
     Route: 058

REACTIONS (2)
  - Off label use [Unknown]
  - Pain in extremity [Unknown]

NARRATIVE: CASE EVENT DATE: 201910
